FAERS Safety Report 21968192 (Version 1)
Quarter: 2023Q1

REPORT INFORMATION
  Report Type: Spontaneous
  Country: US (occurrence: US)
  Receive Date: 20230208
  Receipt Date: 20230208
  Transmission Date: 20230417
  Serious: No
  Sender: FDA-Public Use
  Company Number: US-INCYTE CORPORATION-2023IN001091

PATIENT

DRUGS (1)
  1. JAKAFI [Suspect]
     Active Substance: RUXOLITINIB
     Indication: Myelofibrosis
     Dosage: 7.5 MILLIGRAM, BID
     Route: 048
     Dates: start: 202205

REACTIONS (3)
  - Skin disorder [Unknown]
  - Skin mass [Unknown]
  - Wrong technique in product usage process [Unknown]
